FAERS Safety Report 7632966-0 (Version None)
Quarter: 2011Q3

REPORT INFORMATION
  Report Type: 
  Country: None (occurrence: None)
  Receive Date: 20110725
  Receipt Date: 20110713
  Transmission Date: 20111222
  Serious: Yes (Hospitalization, Other)
  Sender: FDA-Public Use
  Company Number: PHHY2011CA50733

PATIENT
  Sex: Female

DRUGS (3)
  1. ZOLEDRONOC ACID [Suspect]
     Indication: OSTEOPOROSIS
     Dosage: 5 MG, UNK
     Route: 042
     Dates: start: 20110606
  2. METOPROLOL TARTRATE [Concomitant]
  3. SYNTHROID [Concomitant]
     Dosage: UNK

REACTIONS (9)
  - NAUSEA [None]
  - BONE PAIN [None]
  - MALAISE [None]
  - ASTHENIA [None]
  - FATIGUE [None]
  - PYREXIA [None]
  - DYSPNOEA [None]
  - GAIT DISTURBANCE [None]
  - CHILLS [None]
